FAERS Safety Report 19581895 (Version 23)
Quarter: 2022Q4

REPORT INFORMATION
  Report Type: Report from Study
  Country: GB (occurrence: GB)
  Receive Date: 20210720
  Receipt Date: 20221228
  Transmission Date: 20230113
  Serious: Yes (Death, Hospitalization, Other)
  Sender: FDA-Public Use
  Company Number: None

PATIENT
  Age: 72 Year
  Sex: Female

DRUGS (113)
  1. DOCETAXEL [Suspect]
     Active Substance: DOCETAXEL
     Indication: HER2 positive breast cancer
     Dosage: ALSO TAKEN(92 MG)CUMULATIVE DOSE-276.0 MG FROM 14-MAY-2015 TO 15-JUL-2015
     Route: 042
     Dates: start: 20150828, end: 20150918
  2. EXEMESTANE [Suspect]
     Active Substance: EXEMESTANE
     Indication: HER2 positive breast cancer
     Dosage: 25 MG, QD
     Route: 048
     Dates: start: 20151013, end: 201604
  3. PERTUZUMAB [Suspect]
     Active Substance: PERTUZUMAB
     Indication: Breast cancer metastatic
     Dosage: 420 MG, Q3W
     Route: 042
     Dates: start: 20150603, end: 20150807
  4. HERCEPTIN [Suspect]
     Active Substance: TRASTUZUMAB
     Indication: Breast cancer metastatic
     Dosage: ALSO TAKEN(275 MG)(CUMULATIVE DOSE 720. 2381 MG)FROM 18-AUG-2015 TO 11-DEC-2015
     Route: 042
     Dates: start: 20150603, end: 20150804
  5. NERATINIB [Suspect]
     Active Substance: NERATINIB
     Indication: HER2 positive breast cancer
     Dosage: 240 MILLIGRAM, QD
     Route: 048
     Dates: start: 20181025, end: 201811
  6. TRASTUZUMAB [Suspect]
     Active Substance: TRASTUZUMAB
     Indication: Product used for unknown indication
     Route: 042
     Dates: start: 20150603, end: 20150804
  7. ADO-TRASTUZUMAB EMTANSINE [Suspect]
     Active Substance: ADO-TRASTUZUMAB EMTANSINE
     Indication: Breast cancer metastatic
     Dosage: ALSO TAKEN (184 MG)CUMULATIVE DOSE OF 2689.9048 MG FROM 26-APR-2016 TO 20-JUL-2016
     Route: 042
     Dates: start: 20160810, end: 20170419
  8. AROMASIN [Suspect]
     Active Substance: EXEMESTANE
     Indication: HER2 positive breast cancer
     Dosage: 25 MG, QD
     Route: 048
     Dates: start: 20151013, end: 201604
  9. AMOXICILLIN [Concomitant]
     Active Substance: AMOXICILLIN
     Indication: Infection
     Dosage: 1500 MG
     Route: 048
     Dates: start: 20150804, end: 20150810
  10. DEXAMETHASONE [Concomitant]
     Active Substance: DEXAMETHASONE
     Dosage: LIQUID,ALSO TAKEN (2 MG)CUMULATIVE DOSE OF 160 MG FROM 03-AUG-2015 TO 05-AUG-2015, 20 ML, OPHTHALMIC
     Dates: start: 20150714, end: 20150923
  11. DOMPERIDONE [Concomitant]
     Active Substance: DOMPERIDONE
     Indication: Prophylaxis
     Dosage: 2 DAYS
     Route: 048
     Dates: start: 20150803, end: 20150805
  12. RANITIDINE [Concomitant]
     Active Substance: RANITIDINE
     Dosage: ALSO TAKEN (150 MG)CUMULATIVE DOSE OF 12600 MG FROM 05-AUG-2015 TO 07-AUG-2015
     Route: 048
     Dates: start: 20150825, end: 20150827
  13. CETIRIZINE [Concomitant]
     Active Substance: CETIRIZINE HYDROCHLORIDE
     Dosage: ALSO TAKE FROM 05-AUG-2015 TO 07-AUG-2015, 1 DF
     Route: 048
     Dates: start: 20150825, end: 20150827
  14. CLAVULANIC ACID [Concomitant]
     Active Substance: CLAVULANIC ACID
     Indication: Infection
     Dosage: 125 MILLIGRAM, QD
     Route: 048
     Dates: start: 20150804, end: 20150810
  15. SIMETHICONE (DIMETHICONE) [Concomitant]
     Active Substance: DIMETHICONE
     Dosage: TOPICAL
     Dates: start: 20150804
  16. LANSOPRAZOLE [Concomitant]
     Active Substance: LANSOPRAZOLE
     Indication: Abdominal discomfort
     Dosage: END DATE AUG-2019
     Route: 048
     Dates: start: 20180902
  17. OXYCODONE [Concomitant]
     Active Substance: OXYCODONE
     Route: 058
     Dates: start: 201901, end: 20190406
  18. OMEPRAZOLE [Concomitant]
     Active Substance: OMEPRAZOLE
     Indication: Prophylaxis
     Route: 048
     Dates: start: 201901, end: 20190406
  19. POTASSIUM BICARBONATE\POTASSIUM CHLORIDE [Concomitant]
     Active Substance: POTASSIUM BICARBONATE\POTASSIUM CHLORIDE
     Dosage: 4 DF, QD
     Route: 048
     Dates: start: 20181120, end: 20181125
  20. BUDESONIDE [Concomitant]
     Active Substance: BUDESONIDE
     Route: 048
     Dates: start: 20181025, end: 20181114
  21. GLYCOPYRRONIUM [Concomitant]
     Active Substance: GLYCOPYRRONIUM
     Dosage: PRN (AS NEEDED), 200 MICROGRAM
     Route: 058
     Dates: start: 201901, end: 20190406
  22. MIDAZOLAM [Concomitant]
     Active Substance: MIDAZOLAM
     Dosage: 2.5 MG
     Route: 058
     Dates: start: 201901, end: 20190406
  23. CYCLIZINE [Concomitant]
     Active Substance: CYCLIZINE
     Dosage: END DATE 05-AUG-2019
     Route: 058
     Dates: start: 201901, end: 20190406
  24. DEXAMETHASONE [Concomitant]
     Active Substance: DEXAMETHASONE
     Dosage: THREE DAYS PRIOR TO CHEMOTHERAPY
     Route: 048
     Dates: start: 20150513, end: 20150805
  25. AMOXICILLIN\CLAVULANATE POTASSIUM [Concomitant]
     Active Substance: AMOXICILLIN\CLAVULANATE POTASSIUM
     Route: 048
     Dates: start: 20150806, end: 20150810
  26. LACTULOSE [Concomitant]
     Active Substance: LACTULOSE
     Dosage: 20 MILLILITER, OD (20 ML, M3)
     Route: 048
     Dates: start: 201901, end: 20190406
  27. LEVETIRACETAM [Concomitant]
     Active Substance: LEVETIRACETAM
     Dosage: 1000 MILLIGRAM, QD
     Route: 048
     Dates: start: 20180918, end: 20190406
  28. LOPERAMIDE [Concomitant]
     Active Substance: LOPERAMIDE
     Route: 048
     Dates: start: 20181025, end: 20190406
  29. CALAMINE [Concomitant]
     Active Substance: CALAMINE\FERRIC OXIDE RED\ZINC OXIDE
     Indication: Dry skin
     Dosage: LOTION, TOPICAL
     Dates: start: 201508, end: 201601
  30. CHLORPHENIRAMINE MALEATE [Concomitant]
     Active Substance: CHLORPHENIRAMINE MALEATE
     Indication: Pruritus
     Route: 042
     Dates: start: 20150807, end: 20150807
  31. HYDROCORTISONE [Concomitant]
     Active Substance: HYDROCORTISONE
     Indication: Pruritus
     Route: 042
     Dates: start: 20150807, end: 20150807
  32. HYPROMELLOSES [Concomitant]
     Active Substance: HYPROMELLOSES
     Indication: Lacrimation increased
     Dosage: 3 DOSAGE FORM, QD (3 OT, QD), OPHTHALMIC
     Dates: end: 20160401
  33. LORAZEPAM [Concomitant]
     Active Substance: LORAZEPAM
     Indication: Panic attack
     Route: 048
     Dates: start: 20160830, end: 20190406
  34. SENNOSIDE B [Concomitant]
     Active Substance: SENNOSIDE B
     Indication: Constipation
     Dosage: 30 MG
     Route: 048
     Dates: start: 20160809, end: 20190406
  35. TICARCILLIN [Concomitant]
     Active Substance: TICARCILLIN
     Indication: Infection
     Dosage: 125 MG, QD
     Route: 048
     Dates: start: 20150804, end: 20150810
  36. POTASSIUM CHLORIDE [Concomitant]
     Active Substance: POTASSIUM CHLORIDE
     Dosage: 2 DF, QD
     Route: 048
     Dates: start: 20181120, end: 20181125
  37. SIMETHICONE (DIMETHICONE) [Concomitant]
     Active Substance: DIMETHICONE
  38. LORAZEPAM [Concomitant]
     Active Substance: LORAZEPAM
     Indication: Insomnia
  39. POTASSIUM CHLORIDE [Concomitant]
     Active Substance: POTASSIUM CHLORIDE
     Dosage: 2 DF, QD
     Route: 048
     Dates: start: 20180805, end: 20180807
  40. TRASTUZUMAB [Suspect]
     Active Substance: TRASTUZUMAB
     Route: 042
     Dates: end: 20150804
  41. TRASTUZUMAB [Suspect]
     Active Substance: TRASTUZUMAB
     Indication: HER2 positive breast cancer
     Dosage: LOADING DOSE
     Route: 042
     Dates: start: 20150513, end: 20150828
  42. TRASTUZUMAB [Suspect]
     Active Substance: TRASTUZUMAB
     Indication: HER2 positive breast cancer
     Dosage: 275 MG, Q3W
     Route: 042
     Dates: start: 20150513, end: 20150513
  43. ADO-TRASTUZUMAB EMTANSINE [Suspect]
     Active Substance: ADO-TRASTUZUMAB EMTANSINE
     Indication: Breast cancer metastatic
     Dosage: 148 MG, Q3W
     Route: 042
     Dates: start: 20170510, end: 20180808
  44. CETIRIZINE [Concomitant]
     Active Substance: CETIRIZINE HYDROCHLORIDE
     Dosage: ALSO TAKE FROM 05-AUG-2015 TO 07-AUG-2015
     Route: 048
     Dates: start: 20190406
  45. AMOXICILLIN\CLAVULANATE POTASSIUM [Concomitant]
     Active Substance: AMOXICILLIN\CLAVULANATE POTASSIUM
     Dosage: 625 MILLIGRAM
     Route: 048
     Dates: start: 20180923, end: 20180930
  46. ADO-TRASTUZUMAB EMTANSINE [Suspect]
     Active Substance: ADO-TRASTUZUMAB EMTANSINE
     Indication: Breast cancer metastatic
     Dosage: ALSO TAKEN (184 MG)CUMULATIVE DOSE OF 2689.9048 MG FROM 26-APR-2016 TO 20-JUL-2016
     Route: 042
     Dates: start: 20160811
  47. DOCETAXEL [Suspect]
     Active Substance: DOCETAXEL
     Indication: HER2 positive breast cancer
     Route: 042
     Dates: start: 20150514, end: 20150715
  48. HERCEPTIN [Suspect]
     Active Substance: TRASTUZUMAB
     Indication: Breast cancer metastatic
     Route: 042
     Dates: start: 20150603, end: 20150828
  49. HERCEPTIN [Suspect]
     Active Substance: TRASTUZUMAB
     Indication: HER2 positive breast cancer
     Dosage: ALSO TAKEN(275 MG)(CUMULATIVE DOSE 720. 2381 MG)FROM 18-AUG-2015 TO 11-DEC-2015. 400 MG
     Route: 042
     Dates: start: 20150513, end: 20150513
  50. ADO-TRASTUZUMAB EMTANSINE [Suspect]
     Active Substance: ADO-TRASTUZUMAB EMTANSINE
     Indication: Breast cancer metastatic
     Dosage: ALSO TAKEN (184 MG)CUMULATIVE DOSE OF 2689.9048 MG FROM 26-APR-2016 TO 20-JUL-2016
     Route: 042
     Dates: start: 20170510, end: 20180808
  51. ADO-TRASTUZUMAB EMTANSINE [Suspect]
     Active Substance: ADO-TRASTUZUMAB EMTANSINE
     Indication: Breast cancer metastatic
     Dosage: ALSO TAKEN (184 MG)CUMULATIVE DOSE OF 2689.9048 MG FROM 26-APR-2016 TO 20-JUL-2016
     Route: 042
     Dates: start: 20160426, end: 20160720
  52. ADO-TRASTUZUMAB EMTANSINE [Suspect]
     Active Substance: ADO-TRASTUZUMAB EMTANSINE
     Indication: Breast cancer metastatic
     Dosage: ALSO TAKEN (184 MG)CUMULATIVE DOSE OF 2689.9048 MG FROM 26-APR-2016 TO 20-JUL-2016
     Route: 042
     Dates: start: 20160810, end: 20170419
  53. CLAVULANIC ACID [Concomitant]
     Active Substance: CLAVULANIC ACID
     Route: 048
     Dates: start: 20150804, end: 20150810
  54. CLAVULANIC ACID [Concomitant]
     Active Substance: CLAVULANIC ACID
     Route: 042
     Dates: start: 20180923, end: 20180930
  55. DEXAMETHASONE [Concomitant]
     Active Substance: DEXAMETHASONE
     Dosage: ALSO RECEIVED 8 MG. THREE DAYS PRIOR TO CHEMOTHERAPY
     Route: 048
     Dates: start: 20150803, end: 20150805
  56. LANSOPRAZOLE [Concomitant]
     Active Substance: LANSOPRAZOLE
     Dosage: END DATE AUG-2019
     Route: 048
     Dates: start: 20181002, end: 201901
  57. RANITIDINE [Concomitant]
     Active Substance: RANITIDINE
     Dosage: 300 MILLIGRAM, QD
     Route: 048
     Dates: start: 20150805, end: 20150807
  58. TRASTUZUMAB [Suspect]
     Active Substance: TRASTUZUMAB
     Route: 042
     Dates: start: 20160108, end: 20160405
  59. TRASTUZUMAB [Suspect]
     Active Substance: TRASTUZUMAB
     Dosage: 400 MILLIGRAM, 3XW/ START DATE: 13-MAY-2015
     Route: 042
     Dates: start: 20150818, end: 20151211
  60. TRASTUZUMAB [Suspect]
     Active Substance: TRASTUZUMAB
     Dosage: LOADING DOSE
     Route: 042
     Dates: start: 20150513, end: 20150513
  61. TRASTUZUMAB [Suspect]
     Active Substance: TRASTUZUMAB
     Indication: Product used for unknown indication
     Dosage: 300 MG
     Route: 042
     Dates: start: 20150603, end: 20150828
  62. TRASTUZUMAB [Suspect]
     Active Substance: TRASTUZUMAB
     Indication: Product used for unknown indication
     Dosage: 275 MG, Q3W
     Route: 042
     Dates: start: 20150918, end: 20151211
  63. NERATINIB [Suspect]
     Active Substance: NERATINIB
     Indication: HER2 positive breast cancer
     Dosage: 240 MG, QD
     Route: 048
     Dates: start: 20180825, end: 201811
  64. AMOXICILLIN\CLAVULANATE POTASSIUM [Concomitant]
     Active Substance: AMOXICILLIN\CLAVULANATE POTASSIUM
     Dosage: 1875 MG, QD
     Route: 048
     Dates: start: 20150804, end: 20150810
  65. DEXAMETHASONE [Concomitant]
     Active Substance: DEXAMETHASONE
     Dosage: 2 MG
     Route: 048
     Dates: start: 20181002, end: 20181212
  66. DEXAMETHASONE [Concomitant]
     Active Substance: DEXAMETHASONE
     Dosage: 8 MG, QD, 4 MG
     Route: 048
     Dates: start: 20150803, end: 20150805
  67. RANITIDINE [Concomitant]
     Active Substance: RANITIDINE
     Dosage: 300 MG, QD
     Route: 048
     Dates: start: 20150825
  68. POTASSIUM BICARBONATE\POTASSIUM CHLORIDE [Concomitant]
     Active Substance: POTASSIUM BICARBONATE\POTASSIUM CHLORIDE
     Route: 048
     Dates: start: 20180605, end: 20180607
  69. AMOXICILLIN [Concomitant]
     Active Substance: AMOXICILLIN
     Indication: Infection
     Dosage: 625 MG
     Route: 048
     Dates: start: 20180923, end: 20180930
  70. CETIRIZINE [Concomitant]
     Active Substance: CETIRIZINE HYDROCHLORIDE
     Indication: Product used for unknown indication
     Dosage: 1 MG, QD
     Route: 048
     Dates: start: 20180825, end: 20180827
  71. DEXAMETHASONE [Concomitant]
     Active Substance: DEXAMETHASONE
     Dosage: 5 ML, QD
     Dates: start: 20150714, end: 20150923
  72. DEXAMETHASONE [Concomitant]
     Active Substance: DEXAMETHASONE
     Indication: Product used for unknown indication
     Dosage: 2 MG
     Route: 048
     Dates: start: 20181002, end: 20181212
  73. LORAZEPAM [Concomitant]
     Active Substance: LORAZEPAM
     Indication: Insomnia
     Dosage: 2 MG
     Route: 048
     Dates: start: 20180917, end: 20180918
  74. CETIRIZINE [Concomitant]
     Active Substance: CETIRIZINE HYDROCHLORIDE
     Dosage: 10 MG, QD
     Route: 048
     Dates: start: 20150805, end: 20190406
  75. TRASTUZUMAB [Suspect]
     Active Substance: TRASTUZUMAB
     Dosage: 160 MILLIGRAM, Q3W/ START DATE: 10-MAY-2017
     Route: 042
     Dates: start: 20150808
  76. TRASTUZUMAB [Suspect]
     Active Substance: TRASTUZUMAB
     Dosage: 184 MILLIGRAM, Q3W/ START DATE: 26-APR-2016
     Route: 042
     Dates: start: 20160720
  77. TRASTUZUMAB [Suspect]
     Active Substance: TRASTUZUMAB
     Route: 042
     Dates: start: 20150804
  78. TRASTUZUMAB [Suspect]
     Active Substance: TRASTUZUMAB
     Route: 042
     Dates: start: 20150604
  79. TRASTUZUMAB [Suspect]
     Active Substance: TRASTUZUMAB
     Dosage: 148 MILLIGRAM, 3XW/ START DATE: 10-AUG-2016
     Route: 042
     Dates: start: 20170419
  80. TRASTUZUMAB [Suspect]
     Active Substance: TRASTUZUMAB
     Dosage: 184 MILLIGRAM, Q3W/ START DATE: 26-APR-2016
     Route: 042
     Dates: end: 20160728
  81. TRASTUZUMAB [Suspect]
     Active Substance: TRASTUZUMAB
     Dosage: 300 MILLIGRAM, 3XW// STAT DATE: 03-JUN-2015
     Route: 042
     Dates: end: 20150804
  82. TRASTUZUMAB [Suspect]
     Active Substance: TRASTUZUMAB
     Indication: HER2 positive breast cancer
     Dosage: 400 MILLIGRAM, 3XW/ START DATE: 13-MAY-2015
     Route: 042
     Dates: start: 20150818, end: 20151211
  83. TRASTUZUMAB [Suspect]
     Active Substance: TRASTUZUMAB
     Indication: HER2 positive breast cancer
     Dosage: 148 MILLIGRAM, 3XW/
     Route: 042
     Dates: start: 20160810, end: 20170419
  84. TRASTUZUMAB [Suspect]
     Active Substance: TRASTUZUMAB
     Dosage: 160 MILLIGRAM, Q3W/, 400 MILLIGRAM, QWK
     Route: 042
     Dates: start: 20170510, end: 20180808
  85. TRASTUZUMAB [Suspect]
     Active Substance: TRASTUZUMAB
     Indication: HER2 positive breast cancer
     Dosage: 300 MILLIGRAM, 3XW/
     Route: 042
     Dates: start: 20150603, end: 20150604
  86. CETIRIZINE [Concomitant]
     Active Substance: CETIRIZINE HYDROCHLORIDE
     Route: 048
     Dates: start: 20150805, end: 20150807
  87. SENNOSIDE B [Concomitant]
     Active Substance: SENNOSIDE B
     Indication: Constipation
     Route: 048
     Dates: start: 20160809, end: 20190406
  88. HERCEPTIN [Suspect]
     Active Substance: TRASTUZUMAB
     Dosage: 275 MG, UNK
     Route: 042
     Dates: start: 20150818, end: 20151211
  89. HERCEPTIN [Suspect]
     Active Substance: TRASTUZUMAB
     Indication: Breast cancer metastatic
     Dosage: 300 MG, Q3W
     Route: 042
     Dates: start: 20160108, end: 20160405
  90. TRASTUZUMAB [Suspect]
     Active Substance: TRASTUZUMAB
     Dosage: 300 MG, Q3W
     Route: 042
     Dates: start: 20160106, end: 20160505
  91. DEXAMETHASONE [Concomitant]
     Active Substance: DEXAMETHASONE
     Dosage: 2 MG, QD (THREE DAYS PRIOR TO CHEMOTHERAPY)
     Route: 048
     Dates: start: 20150803, end: 20150805
  92. DOMPERIDONE [Concomitant]
     Active Substance: DOMPERIDONE
     Indication: Prophylaxis
     Dosage: 30 MG
     Route: 048
     Dates: start: 20150803, end: 20150805
  93. TRASTUZUMAB [Suspect]
     Active Substance: TRASTUZUMAB
     Indication: Product used for unknown indication
     Dosage: 275 MILLIGRAM, Q3W / START DATE:18-SEP-2015
     Route: 042
     Dates: start: 20150918, end: 20151211
  94. TRASTUZUMAB [Suspect]
     Active Substance: TRASTUZUMAB
     Dosage: 184 MILLIGRAM, Q3W/ START DATE: 26-APR-2016
     Route: 042
     Dates: start: 20150818, end: 20160720
  95. TRASTUZUMAB [Suspect]
     Active Substance: TRASTUZUMAB
     Indication: HER2 positive breast cancer
     Dosage: 400 MG (LOADING DOSE), Q3W
     Route: 042
     Dates: start: 20150513, end: 20150513
  96. TRASTUZUMAB [Suspect]
     Active Substance: TRASTUZUMAB
     Dosage: LOADING DOSE
     Dates: start: 20150513, end: 20150828
  97. LANSOPRAZOLE [Concomitant]
     Active Substance: LANSOPRAZOLE
     Indication: Product used for unknown indication
     Dosage: 30 MILLIGRAM, UNK
     Route: 048
     Dates: start: 20181002
  98. TRASTUZUMAB [Suspect]
     Active Substance: TRASTUZUMAB
     Route: 042
     Dates: start: 20150603, end: 20150820
  99. TRASTUZUMAB [Suspect]
     Active Substance: TRASTUZUMAB
     Dosage: 184 MILLIGRAM, Q3W/ START DATE: 26-APR-2016
     Route: 042
     Dates: end: 20160720
  100. AMOXICILLIN [Concomitant]
     Active Substance: AMOXICILLIN
     Indication: Infection
     Dosage: 625 MG
     Route: 048
     Dates: start: 20150804, end: 20150810
  101. DOMPERIDONE [Concomitant]
     Active Substance: DOMPERIDONE
     Indication: Prophylaxis
     Dosage: 30 MILLIGRAM, QD
     Route: 048
     Dates: start: 20150803
  102. LANSOPRAZOLE [Concomitant]
     Active Substance: LANSOPRAZOLE
     Indication: Product used for unknown indication
     Dosage: 30 MILLIGRAM, QD
     Route: 048
     Dates: start: 20181002
  103. LEVETIRACETAM [Concomitant]
     Active Substance: LEVETIRACETAM
     Dosage: 1000 MILLIGRAM, QD
     Route: 048
     Dates: start: 20180918, end: 20190406
  104. RANITIDINE [Concomitant]
     Active Substance: RANITIDINE
     Dosage: 150 MILLIGRAM, QD
     Route: 048
     Dates: start: 20150825
  105. PERTUZUMAB [Suspect]
     Active Substance: PERTUZUMAB
     Indication: Breast cancer metastatic
     Dosage: 420 MG, Q3W
     Route: 042
     Dates: start: 20150603, end: 20150807
  106. CALAMINE [Concomitant]
     Active Substance: CALAMINE\FERRIC OXIDE RED\ZINC OXIDE
     Dosage: TOPICAL
  107. HYPROMELLOSES [Concomitant]
     Active Substance: HYPROMELLOSES
     Indication: Lacrimation increased
     Dosage: UNK, 0.33, OPHTHALMIC
     Dates: end: 20160401
  108. CETIRIZINE [Concomitant]
     Active Substance: CETIRIZINE HYDROCHLORIDE
     Dosage: 10 MG, QD
     Route: 048
     Dates: start: 20180825, end: 20180827
  109. LANSOPRAZOLE [Concomitant]
     Active Substance: LANSOPRAZOLE
     Dosage: 30 MILLIGRAM, QD, END DATE: AUG-2019
     Route: 048
     Dates: start: 20181002
  110. DOCETAXEL [Suspect]
     Active Substance: DOCETAXEL
     Indication: Breast cancer metastatic
  111. TRASTUZUMAB [Suspect]
     Active Substance: TRASTUZUMAB
     Dosage: 480 MILLIGRAM, EVERY WEEK
     Route: 042
     Dates: start: 20170510
  112. CETIRIZINE [Concomitant]
     Active Substance: CETIRIZINE HYDROCHLORIDE
     Dosage: 10 MILLIGRAM
     Route: 048
     Dates: end: 20190406
  113. LANSOPRAZOLE [Concomitant]
     Active Substance: LANSOPRAZOLE
     Indication: Abdominal discomfort
     Dosage: 30 MILLIGRAM
     Route: 048
     Dates: start: 20181002

REACTIONS (22)
  - Disease progression [Fatal]
  - Appendicitis [Recovered/Resolved]
  - Dementia [Recovered/Resolved]
  - Fatigue [Recovered/Resolved]
  - Neuropathy peripheral [Not Recovered/Not Resolved]
  - Dry skin [Recovered/Resolved]
  - Memory impairment [Recovered/Resolved]
  - Constipation [Not Recovered/Not Resolved]
  - Amnesia [Not Recovered/Not Resolved]
  - Panic attack [Not Recovered/Not Resolved]
  - Nail dystrophy [Recovered/Resolved]
  - Lacrimation increased [Recovered/Resolved]
  - Chest discomfort [Recovered/Resolved]
  - Axillary pain [Recovered/Resolved]
  - Ejection fraction decreased [Unknown]
  - Catheter site haemorrhage [Recovered/Resolved]
  - Pruritus [Recovered/Resolved]
  - Insomnia [Not Recovered/Not Resolved]
  - Anaphylactic reaction [Recovered/Resolved]
  - Hypokalaemia [Recovered/Resolved]
  - Seizure [Recovered/Resolved]
  - Diarrhoea [Recovered/Resolved]

NARRATIVE: CASE EVENT DATE: 20150624
